FAERS Safety Report 6219377-X (Version None)
Quarter: 2009Q2

REPORT INFORMATION
  Report Type: 
  Country: None (occurrence: None)
  Receive Date: 20090609
  Receipt Date: 20090529
  Transmission Date: 20091009
  Serious: Yes (Hospitalization)
  Sender: FDA-Public Use
  Company Number: US-BIOGENIDEC-2007BI008885

PATIENT
  Age: 43 Year
  Sex: Female

DRUGS (2)
  1. AVONEX [Suspect]
     Indication: MULTIPLE SCLEROSIS
     Route: 030
     Dates: start: 20031121, end: 20070409
  2. AVONEX [Suspect]
     Route: 030
     Dates: start: 20070521

REACTIONS (2)
  - CONGENITAL HIP DEFORMITY [None]
  - DISLOCATION OF JOINT PROSTHESIS [None]
